FAERS Safety Report 18079287 (Version 1)
Quarter: 2020Q3

REPORT INFORMATION
  Report Type: Spontaneous
  Country: US (occurrence: US)
  Receive Date: 20200727
  Receipt Date: 20200727
  Transmission Date: 20201103
  Serious: Yes (Other)
  Sender: FDA-Public Use
  Company Number: None

PATIENT
  Age: 69 Year
  Sex: Female
  Weight: 78.3 kg

DRUGS (20)
  1. MIRALAX [Concomitant]
     Active Substance: POLYETHYLENE GLYCOL 3350
  2. MVI [Concomitant]
     Active Substance: VITAMINS
  3. OXYCODONE [Concomitant]
     Active Substance: OXYCODONE
  4. PRAVASTATIN. [Concomitant]
     Active Substance: PRAVASTATIN
  5. TYLENOL EXTRA STRENGTH [Concomitant]
     Active Substance: ACETAMINOPHEN
  6. ADDERALL [Concomitant]
     Active Substance: AMPHETAMINE ASPARTATE\AMPHETAMINE SULFATE\DEXTROAMPHETAMINE SACCHARATE\DEXTROAMPHETAMINE SULFATE
  7. IMIPRAMINE [Concomitant]
     Active Substance: IMIPRAMINE
  8. ALPRAZOLAM. [Concomitant]
     Active Substance: ALPRAZOLAM
  9. BACTRIM [Concomitant]
     Active Substance: SULFAMETHOXAZOLE\TRIMETHOPRIM
  10. TEMOZOLOMIDE. [Suspect]
     Active Substance: TEMOZOLOMIDE
     Indication: BRAIN NEOPLASM MALIGNANT
     Dosage: OTHER FREQUENCY:DAYS 1?5 OF 28;?
     Route: 048
     Dates: start: 20200410, end: 20200727
  11. TUMS [Concomitant]
     Active Substance: CALCIUM CARBONATE
  12. ATENOLOL. [Concomitant]
     Active Substance: ATENOLOL
  13. BACLOFEN. [Concomitant]
     Active Substance: BACLOFEN
  14. MAGIC SWIZZIE [Concomitant]
  15. ZOFRAN [Concomitant]
     Active Substance: ONDANSETRON HYDROCHLORIDE
  16. ARIPIPRAZOLE. [Concomitant]
     Active Substance: ARIPIPRAZOLE
  17. VENLAFAXINE [Concomitant]
     Active Substance: VENLAFAXINE HYDROCHLORIDE
  18. FLONASE [Concomitant]
     Active Substance: FLUTICASONE PROPIONATE
  19. NYSTATIN. [Concomitant]
     Active Substance: NYSTATIN
  20. SPIRIVA RESPIMAT [Concomitant]
     Active Substance: TIOTROPIUM BROMIDE

REACTIONS (1)
  - Disease progression [None]

NARRATIVE: CASE EVENT DATE: 20200727
